FAERS Safety Report 6679466-2 (Version None)
Quarter: 2010Q2

REPORT INFORMATION
  Report Type: 
  Country: None (occurrence: None)
  Receive Date: 20100413
  Receipt Date: 20100405
  Transmission Date: 20101027
  Serious: Yes (Hospitalization)
  Sender: FDA-Public Use
  Company Number: US-ABBOTT-10P-163-0636627-00

PATIENT
  Sex: Male
  Weight: 61.29 kg

DRUGS (7)
  1. HUMIRA [Suspect]
     Indication: CROHN'S DISEASE
     Route: 058
     Dates: start: 20080701, end: 20081101
  2. HUMIRA [Suspect]
     Route: 058
     Dates: start: 20081101, end: 20090201
  3. HUMIRA [Suspect]
     Route: 058
     Dates: start: 20090201, end: 20091201
  4. HUMIRA [Suspect]
     Route: 058
     Dates: start: 20091201, end: 20100301
  5. HUMIRA [Suspect]
     Route: 058
     Dates: start: 20100301
  6. AVAPRO [Concomitant]
     Indication: HYPERTENSION
     Route: 048
  7. PROTONIX [Concomitant]
     Indication: GASTROOESOPHAGEAL REFLUX DISEASE
     Route: 048

REACTIONS (3)
  - BLOOD TRIGLYCERIDES INCREASED [None]
  - CROHN'S DISEASE [None]
  - INTESTINAL OBSTRUCTION [None]
